FAERS Safety Report 16818355 (Version 1)
Quarter: 2019Q3

REPORT INFORMATION
  Report Type: Spontaneous
  Country: US (occurrence: US)
  Receive Date: 20190917
  Receipt Date: 20190917
  Transmission Date: 20191005
  Serious: No
  Sender: FDA-Public Use
  Company Number: US-SA-2019SA253757

PATIENT
  Age: 28 Year
  Sex: Male

DRUGS (1)
  1. LANTUS [Suspect]
     Active Substance: INSULIN GLARGINE
     Indication: TYPE 1 DIABETES MELLITUS
     Dosage: 26 UNITS IN THE MORNING AND 6 TO 8 UNITS IN NIGHT
     Route: 065

REACTIONS (4)
  - Incorrect dose administered [Unknown]
  - Wrong technique in device usage process [Unknown]
  - Device leakage [Unknown]
  - Inappropriate schedule of product administration [Unknown]
